FAERS Safety Report 4825358-0 (Version None)
Quarter: 2005Q4

REPORT INFORMATION
  Report Type: 
  Country: None (occurrence: None)
  Receive Date: 20051109
  Receipt Date: 20051030
  Transmission Date: 20060501
  Serious: Yes (Other)
  Sender: FDA-Public Use
  Company Number: 2005150578

PATIENT
  Sex: Male

DRUGS (6)
  1. NEURONTIN [Suspect]
     Indication: NEURALGIA
  2. LYRICA [Concomitant]
     Indication: NEURALGIA
     Dosage: 900 MG (1 D), ORAL
     Route: 048
  3. LISINOPRIL [Concomitant]
  4. ACETYLSALICYLIC ACID SRT [Concomitant]
  5. OMEPRAZOLE [Concomitant]
  6. GLUCOVANCE [Concomitant]

REACTIONS (5)
  - DRUG EFFECT DECREASED [None]
  - EYE DISORDER [None]
  - RETINAL DISORDER [None]
  - RETINAL OEDEMA [None]
  - THROMBOSIS [None]
